FAERS Safety Report 12110962 (Version 2)
Quarter: 2016Q1

REPORT INFORMATION
  Report Type: Spontaneous
  Country: CN (occurrence: CN)
  Receive Date: 20160224
  Receipt Date: 20160226
  Transmission Date: 20160526
  Serious: Yes (Death)
  Sender: FDA-Public Use
  Company Number: CN-JNJFOC-20160217925

PATIENT
  Age: 60 Year
  Sex: Female

DRUGS (11)
  1. TIENAM [Concomitant]
     Active Substance: CILASTATIN SODIUM\IMIPENEM
     Route: 065
  2. GAMMA GLOBULIN [Concomitant]
     Active Substance: IMMUNE GLOBULIN NOS
     Route: 065
  3. SPORANOX [Suspect]
     Active Substance: ITRACONAZOLE
     Indication: LUNG INFECTION
     Route: 048
     Dates: start: 2013
  4. VORICONAZOLE. [Concomitant]
     Active Substance: VORICONAZOLE
     Route: 065
  5. HOMOHARRINGTONINE [Concomitant]
     Active Substance: OMACETAXINE MEPESUCCINATE
     Route: 065
  6. BIAPENEM [Concomitant]
     Active Substance: BIAPENEM
     Route: 065
  7. GRANULOCYTE COLONY STIMULATING FACTOR [Concomitant]
     Active Substance: GRANULOCYTE COLONY-STIMULATING FACTOR NOS
     Route: 065
  8. SPORANOX [Suspect]
     Active Substance: ITRACONAZOLE
     Indication: PRODUCT USED FOR UNKNOWN INDICATION
     Route: 065
     Dates: start: 201501, end: 201504
  9. LINEZOLID. [Concomitant]
     Active Substance: LINEZOLID
     Route: 065
  10. ACLARUBICIN [Concomitant]
     Active Substance: ACLARUBICIN
     Route: 065
  11. CYTOSAR [Concomitant]
     Active Substance: CYTARABINE
     Route: 065

REACTIONS (3)
  - Product use issue [Unknown]
  - Off label use [Unknown]
  - Acute myeloid leukaemia [Fatal]
